FAERS Safety Report 17236535 (Version 2)
Quarter: 2020Q1

REPORT INFORMATION
  Report Type: Report from Study
  Country: PK (occurrence: PK)
  Receive Date: 20200106
  Receipt Date: 20200129
  Transmission Date: 20200409
  Serious: Yes (Death, Hospitalization)
  Sender: FDA-Public Use
  Company Number: NVSC2019PK085222

PATIENT
  Age: 67 Year
  Sex: Male

DRUGS (9)
  1. GETRYL [Concomitant]
     Indication: PRODUCT USED FOR UNKNOWN INDICATION
     Route: 065
  2. OLANZAPINE. [Concomitant]
     Active Substance: OLANZAPINE
     Indication: PRODUCT USED FOR UNKNOWN INDICATION
     Route: 065
  3. FEBUXOSTAT. [Concomitant]
     Active Substance: FEBUXOSTAT
     Indication: PRODUCT USED FOR UNKNOWN INDICATION
     Route: 065
  4. LIPIGET [Concomitant]
     Indication: PRODUCT USED FOR UNKNOWN INDICATION
     Route: 065
  5. REVOLADE [Suspect]
     Active Substance: ELTROMBOPAG
     Indication: IMMUNE THROMBOCYTOPENIC PURPURA
     Dosage: 50 MG, QD (STOPPED ON 04 SEP 2019)
     Route: 048
     Dates: start: 20180514
  6. ZURIG [Concomitant]
     Indication: PRODUCT USED FOR UNKNOWN INDICATION
     Route: 065
  7. CARDINIT [Concomitant]
     Indication: PRODUCT USED FOR UNKNOWN INDICATION
     Route: 065
  8. CO-EZIDAY [Concomitant]
     Indication: PRODUCT USED FOR UNKNOWN INDICATION
     Route: 065
  9. LASIX [Concomitant]
     Active Substance: FUROSEMIDE
     Indication: PRODUCT USED FOR UNKNOWN INDICATION
     Route: 065

REACTIONS (13)
  - Death [Fatal]
  - Orthopnoea [Unknown]
  - Confusional state [Unknown]
  - Cough [Unknown]
  - Oedema peripheral [Unknown]
  - Infection [Unknown]
  - Dyspnoea [Unknown]
  - Fatigue [Unknown]
  - Oedema [Unknown]
  - Lethargy [Unknown]
  - Chest discomfort [Unknown]
  - Pyrexia [Unknown]
  - Hypertension [Unknown]

NARRATIVE: CASE EVENT DATE: 20190904
